FAERS Safety Report 8224396-8 (Version None)
Quarter: 2012Q1

REPORT INFORMATION
  Report Type: 
  Country: None (occurrence: None)
  Receive Date: 20120321
  Receipt Date: 20120313
  Transmission Date: 20120608
  Serious: Yes (Hospitalization)
  Sender: FDA-Public Use
  Company Number: DE-INCYTE CORPORATION-2012IN000370

PATIENT
  Sex: Male
  Weight: 71 kg

DRUGS (6)
  1. INC424 [Suspect]
     Indication: MYELOFIBROSIS
     Dosage: 20 MG, BID
     Route: 048
     Dates: start: 20110901, end: 20120304
  2. INC424 [Suspect]
     Dosage: UNK UNK, BID
     Route: 048
     Dates: start: 20120309
  3. EXJADE [Concomitant]
     Dosage: UNK
     Dates: start: 20100604, end: 20120304
  4. ASPIRIN [Concomitant]
     Dosage: UNK
     Dates: start: 20100101
  5. BISOPROLOL FUMARATE [Concomitant]
     Dosage: UNK
     Dates: start: 20100101
  6. ALLOPURINOL [Concomitant]
     Dosage: UNK
     Dates: start: 20100902

REACTIONS (4)
  - VOMITING [None]
  - VERTIGO [None]
  - ABDOMINAL PAIN [None]
  - NAUSEA [None]
